FAERS Safety Report 4617904-7 (Version None)
Quarter: 2005Q1

REPORT INFORMATION
  Report Type: 
  Country: None (occurrence: None)
  Receive Date: 20050322
  Receipt Date: 20050309
  Transmission Date: 20050727
  Serious: Yes (Death)
  Sender: FDA-Public Use
  Company Number: HQWYE140621SEP04

PATIENT
  Age: 81 Year
  Sex: Male

DRUGS (3)
  1. CORDARONE [Suspect]
     Dosage: 1200 MG ONCE INTRAVENOUS
     Route: 042
     Dates: start: 20040731
  2. MORPHINE [Concomitant]
  3. ACETAMINOPHEN [Concomitant]

REACTIONS (3)
  - ACCIDENTAL OVERDOSE [None]
  - MEDICATION ERROR [None]
  - PRESCRIBED OVERDOSE [None]
